FAERS Safety Report 5153312-0 (Version None)
Quarter: 2006Q4

REPORT INFORMATION
  Report Type: 
  Country: None (occurrence: None)
  Receive Date: 20061117
  Receipt Date: 20061103
  Transmission Date: 20070319
  Serious: Yes (Hospitalization)
  Sender: FDA-Public Use
  Company Number: US-ROCHE-470189

PATIENT
  Sex: Female

DRUGS (1)
  1. KLONOPIN [Suspect]
     Indication: MANIA
     Dosage: SECOND INDICATION: SLEEP
     Route: 065

REACTIONS (7)
  - BLOOD THYROID STIMULATING HORMONE DECREASED [None]
  - DEPENDENCE [None]
  - DIABETES MELLITUS [None]
  - MUSCLE SPASMS [None]
  - TREMOR [None]
  - VICTIM OF CRIME [None]
  - VICTIM OF SEXUAL ABUSE [None]
